FAERS Safety Report 6170906-4 (Version None)
Quarter: 2009Q2

REPORT INFORMATION
  Report Type: 
  Country: None (occurrence: None)
  Receive Date: 20090427
  Receipt Date: 20090414
  Transmission Date: 20091009
  Serious: Yes (Hospitalization)
  Sender: FDA-Public Use
  Company Number: 1-18113079

PATIENT
  Sex: Female

DRUGS (6)
  1. CARBAMAZEPINE [Suspect]
     Indication: FACIAL NEURALGIA
     Dosage: ORAL
     Route: 048
  2. PARACETAMOL [Concomitant]
  3. CLOPIDOGREL [Concomitant]
  4. OMEPRAZOLE [Concomitant]
  5. ZOLPIDEM [Concomitant]
  6. MIANSERIN [Concomitant]

REACTIONS (6)
  - BLOOD PRESSURE INADEQUATELY CONTROLLED [None]
  - CONDITION AGGRAVATED [None]
  - DRUG RESISTANCE [None]
  - HYPERTENSION [None]
  - LEFT VENTRICULAR HYPERTROPHY [None]
  - LIVER DISORDER [None]
